FAERS Safety Report 24008555 (Version 1)
Quarter: 2024Q2

REPORT INFORMATION
  Report Type: Spontaneous
  Country: GB (occurrence: GB)
  Receive Date: 20240625
  Receipt Date: 20240625
  Transmission Date: 20240716
  Serious: Yes (Other)
  Sender: FDA-Public Use
  Company Number: GB-MHRA-TPP17125124C20933546YC1718269832411

PATIENT
  Age: 85 Year
  Sex: Female
  Weight: 68 kg

DRUGS (21)
  1. CEPHALEXIN [Suspect]
     Active Substance: CEPHALEXIN
     Indication: Product used for unknown indication
     Dosage: 250 MILLIGRAM, FOUR TIMES/DAY
     Route: 065
     Dates: start: 20240610
  2. BISACODYL [Concomitant]
     Active Substance: BISACODYL
     Indication: Product used for unknown indication
     Dosage: UNK, 1-2 AT NIGHT WHEN NEEDED
     Route: 065
     Dates: start: 20230912
  3. AMOXICILLIN\CLAVULANATE POTASSIUM [Concomitant]
     Active Substance: AMOXICILLIN\CLAVULANATE POTASSIUM
     Indication: Product used for unknown indication
     Dosage: 1 DOSAGE FORM, 3 TIMES A DAY
     Route: 065
     Dates: start: 20240607
  4. COTRIMOXAZOLE [Concomitant]
     Active Substance: SULFAMETHOXAZOLE\TRIMETHOPRIM
     Indication: Product used for unknown indication
     Dosage: 1 DOSAGE FORM, TWO TIMES A DAY, ONE TABLET BD FOR 5 DAYS AS PER MICRO ADVICE
     Route: 065
     Dates: start: 20240613
  5. CANDESARTAN [Concomitant]
     Active Substance: CANDESARTAN
     Indication: Product used for unknown indication
     Dosage: 1 DOSAGE FORM, ONCE A DAY
     Route: 065
     Dates: start: 20230912
  6. HYDROCORTISONE\MICONAZOLE NITRATE [Concomitant]
     Active Substance: HYDROCORTISONE\MICONAZOLE NITRATE
     Indication: Product used for unknown indication
     Dosage: 1 DOSAGE FORM, TWO TIMES A DAY
     Route: 065
     Dates: start: 20240405, end: 20240503
  7. DERMOL [Concomitant]
     Active Substance: BENZALKONIUM CHLORIDE\CHLORHEXIDINE HYDROCHLORIDE\ISOPROPYL MYRISTATE\PARAFFIN
     Indication: Product used for unknown indication
     Dosage: UNK, USE AS DIRECTED FOR WASHING AND WHEN REQUIRED
     Route: 065
     Dates: start: 20230912
  8. HYPROMELLOSE PHTHALATE [Concomitant]
     Active Substance: HYPROMELLOSE PHTHALATE
     Indication: Product used for unknown indication
     Dosage: 1 DOSAGE FORM, ONE DROP AS NEEDED
     Route: 065
     Dates: start: 20230912
  9. FAMOTIDINE [Concomitant]
     Active Substance: FAMOTIDINE
     Indication: Product used for unknown indication
     Dosage: 1 DOSAGE FORM, ONCE A DAY
     Route: 065
     Dates: start: 20230912
  10. LORAZEPAM [Concomitant]
     Active Substance: LORAZEPAM
     Indication: Agitation
     Dosage: UNK, PLACE HALF TO ONE TABLET UNDER THE TONGUE UP TO THREE TIMES PER DAY FOR AGITATION
     Route: 060
     Dates: start: 20240605
  11. LACTULOSE [Concomitant]
     Active Substance: LACTULOSE
     Indication: Product used for unknown indication
     Dosage: 15 MILLILITER, TWO TIMES A DAY
     Route: 065
     Dates: start: 20230912
  12. MELATONIN [Concomitant]
     Active Substance: MELATONIN
     Indication: Product used for unknown indication
     Dosage: 1 DOSAGE FORM, ONCE A DAY, TAKE ONE AT NIGHT 1-2 HOURS BEFORE BEDTIME.
     Route: 065
     Dates: start: 20230912
  13. MEMANTINE [Concomitant]
     Active Substance: MEMANTINE
     Indication: Product used for unknown indication
     Dosage: 1 DOSAGE FORM, ONCE A DAY
     Route: 065
     Dates: start: 20230912
  14. MIRTAZAPINE [Concomitant]
     Active Substance: MIRTAZAPINE
     Indication: Product used for unknown indication
     Dosage: 1 DOSAGE FORM, ONCE A DAY, TAKE ONE AT NIGHT
     Route: 065
     Dates: start: 20230912
  15. POLYETHYLENE GLYCOLS [Concomitant]
     Active Substance: POLYETHYLENE GLYCOLS
     Indication: Product used for unknown indication
     Dosage: UNK, USE AS DIRECTED
     Route: 065
     Dates: start: 20231027
  16. NITROFURANTOIN [Concomitant]
     Active Substance: NITROFURANTOIN
     Indication: Product used for unknown indication
     Dosage: 1 DOSAGE FORM, ONCE A DAY, ONCE DAILY
     Route: 065
     Dates: start: 20231027
  17. PROMETHAZINE HYDROCHLORIDE [Concomitant]
     Active Substance: PROMETHAZINE HYDROCHLORIDE
     Indication: Product used for unknown indication
     Dosage: 1 DOSAGE FORM, TAKE ONE TABLET AT NIGHT AS REQUIRED TO HELP WI...
     Route: 065
     Dates: start: 20230912
  18. QUETIAPINE [Concomitant]
     Active Substance: QUETIAPINE
     Indication: Product used for unknown indication
     Dosage: 25 MILLIGRAM, ONCE A DAY
     Route: 065
     Dates: start: 20230912
  19. DIETARY SUPPLEMENT [Concomitant]
     Active Substance: DIETARY SUPPLEMENT
     Indication: Product used for unknown indication
     Dosage: 1 DOSAGE FORM, ONCE A DAY, 1 SACHET A DAY
     Route: 065
     Dates: start: 20240522
  20. TOLTERODINE [Concomitant]
     Active Substance: TOLTERODINE
     Indication: Product used for unknown indication
     Dosage: 1 DOSAGE FORM, TWO TIMES A DAY
     Route: 065
     Dates: start: 20231031
  21. ZERODOUBLE [Concomitant]
     Indication: Product used for unknown indication
     Dosage: UNK, USE AS NEEDED
     Route: 065
     Dates: start: 20230912

REACTIONS (2)
  - Lip swelling [Recovering/Resolving]
  - Diarrhoea [Recovering/Resolving]
